FAERS Safety Report 5048447-7 (Version None)
Quarter: 2006Q3

REPORT INFORMATION
  Report Type: 
  Country: None (occurrence: None)
  Receive Date: 20060703
  Receipt Date: 20060625
  Transmission Date: 20061208
  Serious: No
  Sender: FDA-Public Use
  Company Number: 06H-163-0308539-00

PATIENT

DRUGS (2)
  1. FENTANYL [Suspect]
     Indication: SEDATIVE THERAPY
     Dosage: SEE IMAGE
     Route: 042
  2. MIDAZOLAM HYDROCHLORIDE [Suspect]
     Indication: SEDATIVE THERAPY
     Dosage: SEE IMAGE
     Route: 042

REACTIONS (1)
  - COMA [None]
